FAERS Safety Report 7910659-X (Version None)
Quarter: 2011Q4

REPORT INFORMATION
  Report Type: 
  Country: None (occurrence: None)
  Receive Date: 20111111
  Receipt Date: 20111102
  Transmission Date: 20120403
  Serious: Yes (Other)
  Sender: FDA-Public Use
  Company Number: DE-ROCHE-GNE320548

PATIENT
  Sex: Female
  Weight: 59.065 kg

DRUGS (6)
  1. XOLAIR [Suspect]
     Dosage: LYOPHILISATE
     Route: 058
     Dates: start: 20110609
  2. NOVOPULMON [Concomitant]
     Dates: start: 20060610
  3. XOLAIR [Suspect]
     Indication: ASTHMA
     Dosage: LIQUID (READY TO USE INJECTION)
     Route: 058
     Dates: start: 20110609, end: 20110609
  4. SPIRIVA [Concomitant]
     Dates: start: 20060610
  5. THEOPHYLLINE [Concomitant]
     Dates: start: 20060610
  6. FORMOTEROL FUMARATE [Concomitant]
     Dates: start: 20060610

REACTIONS (3)
  - OEDEMA PERIPHERAL [None]
  - PRURITUS [None]
  - ERYTHEMA [None]
